FAERS Safety Report 6222556-9 (Version None)
Quarter: 2009Q2

REPORT INFORMATION
  Report Type: 
  Country: None (occurrence: None)
  Receive Date: 20090609
  Receipt Date: 20090609
  Transmission Date: 20091009
  Serious: Yes (Other)
  Sender: FDA-Public Use
  Company Number: None

PATIENT
  Sex: Male
  Weight: 106.5953 kg

DRUGS (2)
  1. ZICAM NO DRIP LIQUID NASAL GEL [Suspect]
     Indication: NASAL CONGESTION
     Dosage: 1-2 TIMES NASAL
     Route: 045
  2. ZICAM EXTREME CONGESTION [Suspect]
     Indication: NASAL CONGESTION
     Dosage: 1  SPRAY IN EACH NOSTRIL 2-3 TIMES DAILY NASAL
     Route: 045

REACTIONS (2)
  - HYPOGEUSIA [None]
  - HYPOSMIA [None]
